FAERS Safety Report 7131204-5 (Version None)
Quarter: 2010Q4

REPORT INFORMATION
  Report Type: 
  Country: None (occurrence: None)
  Receive Date: 20101124
  Receipt Date: 20101124
  Transmission Date: 20110411
  Serious: Yes (Death)
  Sender: FDA-Public Use
  Company Number: None

PATIENT

DRUGS (1)
  1. PRISTIQ [Suspect]
     Dates: start: 20101020, end: 20101022

REACTIONS (10)
  - ABDOMINAL DISCOMFORT [None]
  - ASPHYXIA [None]
  - CHILLS [None]
  - COMPLETED SUICIDE [None]
  - FLATULENCE [None]
  - INSOMNIA [None]
  - MALAISE [None]
  - NAUSEA [None]
  - NEGATIVE THOUGHTS [None]
  - TACHYPHRENIA [None]
